FAERS Safety Report 15609906 (Version 1)
Quarter: 2018Q4

REPORT INFORMATION
  Report Type: Spontaneous
  Country: GB (occurrence: GB)
  Receive Date: 20181113
  Receipt Date: 20181113
  Transmission Date: 20190205
  Serious: Yes (Hospitalization, Other)
  Sender: FDA-Public Use
  Company Number: GB-ACCORD-085828

PATIENT
  Age: 19 Month
  Sex: Female

DRUGS (1)
  1. METHOTREXATE. [Suspect]
     Active Substance: METHOTREXATE
     Dosage: 25 MG, SINGLE
     Route: 048

REACTIONS (3)
  - Accidental overdose [Unknown]
  - Blood alkaline phosphatase increased [Recovered/Resolved]
  - Accidental exposure to product by child [Unknown]
